FAERS Safety Report 9554055 (Version 1)
Quarter: 2013Q3

REPORT INFORMATION
  Report Type: Spontaneous
  Country: BR (occurrence: BR)
  Receive Date: 20130925
  Receipt Date: 20130925
  Transmission Date: 20140515
  Serious: Yes (Hospitalization)
  Sender: FDA-Public Use
  Company Number: BR-MERCK-1309BRA011844

PATIENT
  Sex: Female

DRUGS (1)
  1. PEG-INTRON [Suspect]
     Dosage: UNK UNK, UNKNOWN
     Route: 058
     Dates: start: 20130408, end: 2013

REACTIONS (1)
  - Hospitalisation [Unknown]
